FAERS Safety Report 19003158 (Version 1)
Quarter: 2021Q1

REPORT INFORMATION
  Report Type: Report from Study
  Country: US (occurrence: US)
  Receive Date: 20210312
  Receipt Date: 20210312
  Transmission Date: 20210420
  Serious: Yes (Other)
  Sender: FDA-Public Use
  Company Number: NVSC2021US048422

PATIENT
  Sex: Male

DRUGS (1)
  1. ENTRESTO [Suspect]
     Active Substance: SACUBITRIL\VALSARTAN
     Indication: PRODUCT USED FOR UNKNOWN INDICATION
     Dosage: 1 DF, BID
     Route: 048
     Dates: start: 20210118

REACTIONS (6)
  - Atrial fibrillation [Recovering/Resolving]
  - Weight decreased [Recovering/Resolving]
  - Product dose omission issue [Unknown]
  - Product dispensing error [Unknown]
  - Pulmonary oedema [Recovering/Resolving]
  - Memory impairment [Unknown]
